FAERS Safety Report 7021344-3 (Version None)
Quarter: 2010Q3

REPORT INFORMATION
  Report Type: 
  Country: None (occurrence: None)
  Receive Date: 20100929
  Receipt Date: 20100921
  Transmission Date: 20110219
  Serious: Yes (Other)
  Sender: FDA-Public Use
  Company Number: US-PFIZER INC-2010120056

PATIENT
  Sex: Female
  Weight: 52.154 kg

DRUGS (2)
  1. SUTENT [Suspect]
     Indication: NEOPLASM
     Dosage: UNK
     Route: 048
     Dates: start: 20100801
  2. LEVOTHYROXINE [Concomitant]
     Indication: HYPOTHYROIDISM
     Dosage: 70 UG, 1X/DAY

REACTIONS (2)
  - LOWER EXTREMITY MASS [None]
  - YELLOW SKIN [None]
